FAERS Safety Report 7164265-8 (Version None)
Quarter: 2010Q4

REPORT INFORMATION
  Report Type: 
  Country: None (occurrence: None)
  Receive Date: 20101215
  Receipt Date: 20101206
  Transmission Date: 20110411
  Serious: Yes (Other)
  Sender: FDA-Public Use
  Company Number: US-WATSON-2010-15830

PATIENT
  Age: 1 Week

DRUGS (2)
  1. FLUOXETINE [Suspect]
     Indication: ANTIDEPRESSANT THERAPY
     Dosage: UNK
     Route: 063
  2. FLUOXETINE [Suspect]
     Dosage: UNK
     Route: 064

REACTIONS (4)
  - ANTIDEPRESSANT DRUG LEVEL INCREASED [None]
  - CRYING [None]
  - FEEDING DISORDER NEONATAL [None]
  - IRRITABILITY [None]
